FAERS Safety Report 11271164 (Version 1)
Quarter: 2015Q3

REPORT INFORMATION
  Report Type: Spontaneous
  Country: US (occurrence: US)
  Receive Date: 20150714
  Receipt Date: 20150714
  Transmission Date: 20151125
  Serious: No
  Sender: FDA-Public Use
  Company Number: US-GLAXOSMITHKLINE-US2015098632

PATIENT
  Sex: Male

DRUGS (14)
  1. AVODART [Suspect]
     Active Substance: DUTASTERIDE
     Indication: PROSTATOMEGALY
     Dosage: 0.5 MG, QD
     Route: 048
     Dates: start: 201504
  2. BIOTIN [Concomitant]
     Active Substance: BIOTIN
  3. DIGOXIN. [Concomitant]
     Active Substance: DIGOXIN
  4. MAGNESIUM OXIDE. [Concomitant]
     Active Substance: MAGNESIUM OXIDE
  5. ALDACTAZIDE [Concomitant]
     Active Substance: HYDROCHLOROTHIAZIDE\SPIRONOLACTONE
  6. ASPIRIN. [Concomitant]
     Active Substance: ASPIRIN
  7. VITAMIN D [Concomitant]
     Active Substance: CHOLECALCIFEROL
  8. VENLAFAXINE [Concomitant]
     Active Substance: VENLAFAXINE HYDROCHLORIDE
  9. VITAMIN B COMPLEX [Concomitant]
     Active Substance: CYANOCOBALAMIN\DEXPANTHENOL\NIACINAMIDE\PYRIDOXINE HYDROCHLORIDE\RIBOFLAVIN 5^-PHOSPHATE SODIUM\THIAMINE HYDROCHLORIDE\VITAMIN B COMPLEX
  10. VITAMIN B12 [Concomitant]
     Active Substance: CYANOCOBALAMIN
  11. CARVEDILOL. [Concomitant]
     Active Substance: CARVEDILOL
  12. ATORVASTATIN [Concomitant]
     Active Substance: ATORVASTATIN
  13. BYDUREON [Concomitant]
     Active Substance: EXENATIDE
  14. GLIPIZIDE XL [Concomitant]
     Active Substance: GLIPIZIDE

REACTIONS (3)
  - Breast tenderness [Not Recovered/Not Resolved]
  - Breast enlargement [Not Recovered/Not Resolved]
  - Breast mass [Not Recovered/Not Resolved]
